FAERS Safety Report 17358939 (Version 2)
Quarter: 2020Q3

REPORT INFORMATION
  Report Type: Spontaneous
  Country: FR (occurrence: FR)
  Receive Date: 20200202
  Receipt Date: 20200317
  Transmission Date: 20201104
  Serious: Yes (Other)
  Sender: FDA-Public Use
  Company Number: FR-CELLTRION INC.-2020FR017588

PATIENT

DRUGS (70)
  1. RITUXIMAB (UNKNOWN) [Suspect]
     Active Substance: RITUXIMAB
     Indication: CHRONIC GRAFT VERSUS HOST DISEASE IN INTESTINE
  2. METHOTREXATE. [Suspect]
     Active Substance: METHOTREXATE
     Indication: GRAFT VERSUS HOST DISEASE
     Dosage: UNK, UNKNOWN FREQ.
     Route: 065
  3. G?CSF [Suspect]
     Active Substance: GRANULOCYTE COLONY-STIMULATING FACTOR NOS
     Dosage: FROM D1 TO D6
     Route: 065
  4. ARACYTINE [Suspect]
     Active Substance: CYTARABINE
     Dosage: 3 G/M2X2/DAY, CYCLIC, ON D1, D2, D8, D9
     Route: 065
  5. ARACYTINE [Suspect]
     Active Substance: CYTARABINE
     Indication: ACUTE MYELOID LEUKAEMIA
     Dosage: 200 MG/M2/DAY, CYCLIC
     Route: 065
  6. ARACYTINE [Suspect]
     Active Substance: CYTARABINE
     Dosage: 200 MG/M2/DAY, CYCLIC
     Route: 065
  7. ARACYTINE [Suspect]
     Active Substance: CYTARABINE
     Indication: ACUTE MYELOID LEUKAEMIA
     Dosage: 3 G/M2X2/DAY, CYCLIC
     Route: 065
  8. ARACYTINE [Suspect]
     Active Substance: CYTARABINE
     Dosage: 2 G/M2/DAY, CYCLIC, ON D2 TO D6
     Route: 065
  9. ARACYTINE [Suspect]
     Active Substance: CYTARABINE
     Dosage: 3 G/M2X2/DAY, CYCLIC, ON D1, D2, D8, D9
     Route: 065
  10. L ASPARAGINASE [Suspect]
     Active Substance: ASPARAGINASE
     Indication: ACUTE MYELOID LEUKAEMIA
     Dosage: 6000 U/M2/DAY, ONCE DAILY
     Route: 065
  11. BASILIXIMAB [Suspect]
     Active Substance: BASILIXIMAB
     Indication: CHRONIC GRAFT VERSUS HOST DISEASE IN INTESTINE
     Dosage: UNK, UNKNOWN FREQ.
     Route: 065
  12. BASILIXIMAB [Suspect]
     Active Substance: BASILIXIMAB
     Indication: GRAFT VERSUS HOST DISEASE IN LUNG
  13. MYCOPHENOLATE MOFETIL. [Suspect]
     Active Substance: MYCOPHENOLATE MOFETIL
     Indication: ACUTE GRAFT VERSUS HOST DISEASE IN INTESTINE
     Dosage: UNK, UNKNOWN FREQ.
     Route: 065
  14. MYCOPHENOLATE MOFETIL. [Suspect]
     Active Substance: MYCOPHENOLATE MOFETIL
     Indication: ACUTE GRAFT VERSUS HOST DISEASE IN SKIN
  15. G?CSF [Suspect]
     Active Substance: GRANULOCYTE COLONY-STIMULATING FACTOR NOS
     Dosage: FROM D1 TO D6
     Route: 065
  16. ARACYTINE [Suspect]
     Active Substance: CYTARABINE
     Dosage: 2 G/M2/DAY, CYCLIC, ON D2 TO D6
     Route: 065
  17. ARACYTINE [Suspect]
     Active Substance: CYTARABINE
     Dosage: 200 MG/M2/DAY, CYCLIC
     Route: 065
  18. ARACYTINE [Suspect]
     Active Substance: CYTARABINE
     Dosage: 2 G/M2/DAY, CYCLIC, ON D2 TO D6
     Route: 065
  19. ARACYTINE [Suspect]
     Active Substance: CYTARABINE
     Dosage: 200 MG/M2/DAY, CYCLIC
     Route: 065
  20. ARACYTINE [Suspect]
     Active Substance: CYTARABINE
     Dosage: 200 MG/M2/DAY, CYCLIC
     Route: 065
  21. AMSACRINE [Suspect]
     Active Substance: AMSACRINE
     Indication: ACUTE MYELOID LEUKAEMIA
     Dosage: 100 MG/M2 X 2/DAY, CYCLIC
     Route: 065
  22. FLUDARABINE [Suspect]
     Active Substance: FLUDARABINE PHOSPHATE
     Dosage: 30 MG/M2, ONCE DAILY, FROM D2 TO D6
     Route: 065
  23. FLUDARABINE [Suspect]
     Active Substance: FLUDARABINE PHOSPHATE
     Dosage: 30 MG/M2, ONCE DAILY, FROM D2 TO D6
     Route: 065
  24. CYCLOPHOSPHAMIDE ANHYDROUS. [Suspect]
     Active Substance: CYCLOPHOSPHAMIDE ANHYDROUS
     Indication: PRODUCT USED FOR UNKNOWN INDICATION
     Dosage: 50 MG/KG, 4X PER DAY
  25. PROGRAF [Suspect]
     Active Substance: TACROLIMUS
     Indication: GRAFT VERSUS HOST DISEASE
     Dosage: 0.5 MG, EVERY OTHER DAY
     Route: 048
     Dates: start: 200906, end: 20101014
  26. ZOVIRAX [Concomitant]
     Active Substance: ACYCLOVIR
     Indication: PRODUCT USED FOR UNKNOWN INDICATION
     Dosage: UNK UNK, UNKNOWN FREQ.
     Route: 065
  27. RITUXIMAB (UNKNOWN) [Suspect]
     Active Substance: RITUXIMAB
     Indication: CHRONIC GRAFT VERSUS HOST DISEASE IN SKIN
     Dosage: UNK UNK, UNKNOWN FREQ.
     Route: 065
  28. RITUXIMAB (UNKNOWN) [Suspect]
     Active Substance: RITUXIMAB
     Indication: GRAFT VERSUS HOST DISEASE IN LUNG
  29. CICLOSPORIN [Suspect]
     Active Substance: CYCLOSPORINE
     Indication: GRAFT VERSUS HOST DISEASE
     Dosage: UNK UNK, UNKNOWN FREQ.
     Route: 065
  30. G?CSF [Suspect]
     Active Substance: GRANULOCYTE COLONY-STIMULATING FACTOR NOS
     Indication: ACUTE MYELOID LEUKAEMIA
     Dosage: FROM D1 TO D6
     Route: 065
  31. ARACYTINE [Suspect]
     Active Substance: CYTARABINE
     Dosage: 200 MG/M2/DAY, CYCLIC
     Route: 065
  32. ARACYTINE [Suspect]
     Active Substance: CYTARABINE
     Indication: ACUTE MYELOID LEUKAEMIA
     Dosage: 3 G/M2X2/DAY, CYCLIC
     Route: 065
  33. ARACYTINE [Suspect]
     Active Substance: CYTARABINE
     Dosage: 200 MG/M2/DAY, CYCLIC
     Route: 065
  34. G?CSF [Suspect]
     Active Substance: GRANULOCYTE COLONY-STIMULATING FACTOR NOS
     Indication: ACUTE MYELOID LEUKAEMIA
     Dosage: FROM D1 TO D6
     Route: 065
  35. ARACYTINE [Suspect]
     Active Substance: CYTARABINE
     Indication: ACUTE MYELOID LEUKAEMIA
     Dosage: 2 G/M2/DAY, CYCLIC, ON D2 TO D6
     Route: 065
  36. ARACYTINE [Suspect]
     Active Substance: CYTARABINE
     Dosage: 3 G/M2X2/DAY, CYCLIC
     Route: 065
  37. ARACYTINE [Suspect]
     Active Substance: CYTARABINE
     Dosage: 3 G/M2X2/DAY, CYCLIC, ON D1, D2, D8, D9
     Route: 065
  38. DAUNORUBICIN [Suspect]
     Active Substance: DAUNORUBICIN
     Indication: ACUTE MYELOID LEUKAEMIA
     Dosage: 40 MG/M2/DAY, CYCLIC
     Route: 065
  39. FLUDARABINE [Suspect]
     Active Substance: FLUDARABINE PHOSPHATE
     Indication: ACUTE MYELOID LEUKAEMIA
     Dosage: 30 MG/M2, ONCE DAILY, FROM D2 TO D6
     Route: 065
  40. FLUDARABINE [Suspect]
     Active Substance: FLUDARABINE PHOSPHATE
     Indication: ACUTE MYELOID LEUKAEMIA
     Dosage: 30 MG/M2, ONCE DAILY, FROM D2 TO D6
     Route: 065
  41. INFLIXIMAB (UNKNOWN) [Suspect]
     Active Substance: INFLIXIMAB
     Indication: CHRONIC GRAFT VERSUS HOST DISEASE IN INTESTINE
  42. TACROLIMUS. [Suspect]
     Active Substance: TACROLIMUS
     Indication: IMMUNOSUPPRESSION
     Dosage: UNK
  43. ARACYTINE [Suspect]
     Active Substance: CYTARABINE
     Dosage: 3 G/M2X2/DAY, CYCLIC, ON D1, D2, D8, D9
     Route: 065
  44. ARACYTINE [Suspect]
     Active Substance: CYTARABINE
     Dosage: 2 G/M2/DAY, CYCLIC, ON D2 TO D6
     Route: 065
  45. ARACYTINE [Suspect]
     Active Substance: CYTARABINE
     Dosage: 2 G/M2/DAY, CYCLIC, ON D2 TO D6
     Route: 065
  46. BASILIXIMAB [Suspect]
     Active Substance: BASILIXIMAB
     Indication: CHRONIC GRAFT VERSUS HOST DISEASE IN SKIN
  47. AMOXICILLIN. [Concomitant]
     Active Substance: AMOXICILLIN
     Indication: ANTIBIOTIC PROPHYLAXIS
     Dosage: UNK, UNKNOWN FREQ.
     Route: 065
  48. ARACYTINE [Suspect]
     Active Substance: CYTARABINE
     Dosage: 2 G/M2/DAY, CYCLIC, ON D2 TO D6
     Route: 065
  49. ARACYTINE [Suspect]
     Active Substance: CYTARABINE
     Dosage: 200 MG/M2/DAY, CYCLIC
     Route: 065
  50. ARACYTINE [Suspect]
     Active Substance: CYTARABINE
     Dosage: 3 G/M2X2/DAY, CYCLIC
     Route: 065
  51. ARACYTINE [Suspect]
     Active Substance: CYTARABINE
     Dosage: 3 G/M2X2/DAY, CYCLIC, ON D1, D2, D8, D9
     Route: 065
  52. ARACYTINE [Suspect]
     Active Substance: CYTARABINE
     Dosage: 2 G/M2/DAY, CYCLIC, ON D2 TO D6
     Route: 065
  53. IDARUBICIN [Suspect]
     Active Substance: IDARUBICIN
     Indication: ACUTE MYELOID LEUKAEMIA
     Dosage: 8 MG/M2, CYCLIC, ON D2, D4, J6
     Route: 065
  54. ETOPOSIDE. [Suspect]
     Active Substance: ETOPOSIDE
     Indication: ACUTE MYELOID LEUKAEMIA
     Dosage: 100 MG/M2/DAY, CYCLIC
     Route: 065
  55. INFLIXIMAB (UNKNOWN) [Suspect]
     Active Substance: INFLIXIMAB
     Indication: GRAFT VERSUS HOST DISEASE IN LUNG
     Dosage: UNK, UNKNOWN FREQ.
     Route: 065
  56. ARACYTINE [Suspect]
     Active Substance: CYTARABINE
     Dosage: 200 MG/M2/DAY, CYCLIC
     Route: 065
  57. ARACYTINE [Suspect]
     Active Substance: CYTARABINE
     Indication: ACUTE MYELOID LEUKAEMIA
     Dosage: 3 G/M2X2/DAY, CYCLIC
     Route: 065
  58. ARACYTINE [Suspect]
     Active Substance: CYTARABINE
     Dosage: 2 G/M2/DAY, CYCLIC, ON D2 TO D6
     Route: 065
  59. ARACYTINE [Suspect]
     Active Substance: CYTARABINE
     Dosage: 2 G/M2/DAY, CYCLIC, ON D2 TO D6
     Route: 065
  60. INFLIXIMAB (UNKNOWN) [Suspect]
     Active Substance: INFLIXIMAB
     Indication: CHRONIC GRAFT VERSUS HOST DISEASE IN SKIN
  61. THYMOGLOBULIN [Suspect]
     Active Substance: LAPINE T-LYMPHOCYTE IMMUNE GLOBULIN
     Indication: GRAFT VERSUS HOST DISEASE
     Dosage: UNK, UNKNOWN FREQ.
     Route: 065
  62. ARACYTINE [Suspect]
     Active Substance: CYTARABINE
     Dosage: 200 MG/M2/DAY, CYCLIC
     Route: 065
  63. ARACYTINE [Suspect]
     Active Substance: CYTARABINE
     Indication: ACUTE MYELOID LEUKAEMIA
     Dosage: 200 MG/M2/DAY, CYCLIC
     Route: 065
  64. ARACYTINE [Suspect]
     Active Substance: CYTARABINE
     Dosage: 3 G/M2X2/DAY, CYCLIC
     Route: 065
  65. ARACYTINE [Suspect]
     Active Substance: CYTARABINE
     Dosage: 2 G/M2/DAY, CYCLIC, ON D2 TO D6
     Route: 065
  66. ARACYTINE [Suspect]
     Active Substance: CYTARABINE
     Dosage: 2 G/M2/DAY, CYCLIC, ON D2 TO D6
     Route: 065
  67. ARACYTINE [Suspect]
     Active Substance: CYTARABINE
     Dosage: 3 G/M2X2/DAY, CYCLIC, ON D1, D2, D8, D9
     Route: 065
  68. ARACYTINE [Suspect]
     Active Substance: CYTARABINE
     Dosage: 200 MG/M2/DAY, CYCLIC
     Route: 065
  69. NOVANTRONE [Suspect]
     Active Substance: MITOXANTRONE HYDROCHLORIDE
     Indication: ACUTE MYELOID LEUKAEMIA
     Dosage: 10 MG/M2/DAY, CYCLIC
     Route: 065
  70. BUSULFAN. [Suspect]
     Active Substance: BUSULFAN
     Indication: PRODUCT USED FOR UNKNOWN INDICATION
     Dosage: 1.2 MG/KG, 4X PER DAY

REACTIONS (10)
  - Mucormycosis [Unknown]
  - Acute graft versus host disease in intestine [Unknown]
  - Tooth disorder [Unknown]
  - Tooth hypoplasia [Not Recovered/Not Resolved]
  - Enamel anomaly [Unknown]
  - Acute graft versus host disease in skin [Unknown]
  - Chronic graft versus host disease [Unknown]
  - Off label use [Unknown]
  - Bronchopulmonary aspergillosis [Unknown]
  - Product use in unapproved indication [Unknown]
